FAERS Safety Report 19073021 (Version 1)
Quarter: 2021Q1

REPORT INFORMATION
  Report Type: Spontaneous
  Country: FR (occurrence: FR)
  Receive Date: 20210330
  Receipt Date: 20210330
  Transmission Date: 20210420
  Serious: Yes (Hospitalization, Other)
  Sender: FDA-Public Use
  Company Number: FR-SA-2021SA096597

PATIENT
  Age: 6 Year
  Sex: Female

DRUGS (6)
  1. RITUXIMAB. [Concomitant]
     Active Substance: RITUXIMAB
     Indication: EPSTEIN-BARR VIRUS INFECTION
     Dosage: ONE INFUSION
  2. BUSULFAN. [Suspect]
     Active Substance: BUSULFAN
     Indication: BONE MARROW CONDITIONING REGIMEN
     Dosage: UNK
  3. CYCLOPHOSPHAMIDE. [Suspect]
     Active Substance: CYCLOPHOSPHAMIDE
     Indication: BONE MARROW CONDITIONING REGIMEN
  4. CYCLOSPORIN [Concomitant]
     Active Substance: CYCLOSPORINE
     Indication: PROPHYLAXIS AGAINST GRAFT VERSUS HOST DISEASE
     Dosage: UNK
  5. ANTI?THYMOCYTE GLOBULIN (RABBIT) NOS [Suspect]
     Active Substance: LAPINE T-LYMPHOCYTE IMMUNE GLOBULIN
     Indication: BONE MARROW CONDITIONING REGIMEN
     Dosage: UNK
  6. METHOTREXATE. [Suspect]
     Active Substance: METHOTREXATE
     Indication: PROPHYLAXIS AGAINST GRAFT VERSUS HOST DISEASE
     Dosage: UNK

REACTIONS (16)
  - Polyneuropathy [Recovering/Resolving]
  - Dysphagia [Recovering/Resolving]
  - Mucosal inflammation [Recovered/Resolved]
  - Herpes simplex reactivation [Recovered/Resolved]
  - COVID-19 [Recovering/Resolving]
  - Respiratory symptom [Recovering/Resolving]
  - Pyrexia [Recovering/Resolving]
  - Productive cough [Recovering/Resolving]
  - Facial paralysis [Recovering/Resolving]
  - Off label use [Unknown]
  - Hypoaesthesia [Recovering/Resolving]
  - Diplegia [Recovering/Resolving]
  - Dysphonia [Recovering/Resolving]
  - Cranial nerve disorder [Recovering/Resolving]
  - Febrile neutropenia [Recovered/Resolved]
  - Acute respiratory distress syndrome [Recovering/Resolving]
